FAERS Safety Report 5285918-2 (Version None)
Quarter: 2007Q1

REPORT INFORMATION
  Report Type: 
  Country: None (occurrence: None)
  Receive Date: 20070328
  Receipt Date: 20070313
  Transmission Date: 20070707
  Serious: Yes (Death, Disabling, Other)
  Sender: FDA-Public Use
  Company Number: A-NJ2007-14585

PATIENT
  Age: 40 Year
  Sex: Female

DRUGS (17)
  1. TRACLEER [Suspect]
     Indication: PULMONARY HYPERTENSION
     Dosage: 62.5 MG, BID, ORAL, 62.5 MG, BID, ORAL, 125 MG, BID, ORAL
     Route: 048
     Dates: start: 20020706, end: 20020717
  2. TRACLEER [Suspect]
     Indication: PULMONARY HYPERTENSION
     Dosage: 62.5 MG, BID, ORAL, 62.5 MG, BID, ORAL, 125 MG, BID, ORAL
     Route: 048
     Dates: start: 20020718, end: 20020905
  3. TRACLEER [Suspect]
     Indication: PULMONARY HYPERTENSION
     Dosage: 62.5 MG, BID, ORAL, 62.5 MG, BID, ORAL, 125 MG, BID, ORAL
     Route: 048
     Dates: start: 20021009, end: 20021218
  4. SULFASALAZINE [Concomitant]
  5. LOPERAMIDE HCL [Concomitant]
  6. COUMADIN [Concomitant]
  7. LASIX [Concomitant]
  8. ALDACTONE [Concomitant]
  9. K-DUR 10 [Concomitant]
  10. PROCTIR (ERYTHROPOIETIN) [Concomitant]
  11. SYNTHROID (LEVOTHYROXIN SODIUM) [Concomitant]
  12. ADVAIR (SALMETEROL XINAFOATE, FLUTICASONE PROPIONATE) [Concomitant]
  13. DIGOXIN [Concomitant]
  14. DILTIAZEM [Concomitant]
  15. MAGNESIUM OXIDE (MAGNESIUM OXIDE) [Concomitant]
  16. FERROUS SULFATE TAB [Concomitant]
  17. ASCORBIC ACID [Concomitant]

REACTIONS (10)
  - ALANINE AMINOTRANSFERASE INCREASED [None]
  - APLASIA PURE RED CELL [None]
  - APLASTIC ANAEMIA [None]
  - ASPARTATE AMINOTRANSFERASE INCREASED [None]
  - BLOOD ALKALINE PHOSPHATASE INCREASED [None]
  - BLOOD BILIRUBIN INCREASED [None]
  - LIVER FUNCTION TEST ABNORMAL [None]
  - NAUSEA [None]
  - RIGHT VENTRICULAR FAILURE [None]
  - VOMITING [None]
